FAERS Safety Report 22291402 (Version 4)
Quarter: 2023Q2

REPORT INFORMATION
  Report Type: Report from Study
  Country: US (occurrence: US)
  Receive Date: 20230506
  Receipt Date: 20230517
  Transmission Date: 20230721
  Serious: No
  Sender: FDA-Public Use
  Company Number: US-002147023-NVSC2023US100054

PATIENT
  Sex: Female

DRUGS (2)
  1. COSENTYX [Suspect]
     Active Substance: SECUKINUMAB
     Indication: Headache
     Dosage: 150 MG
     Route: 030
     Dates: start: 20230301
  2. COSENTYX [Suspect]
     Active Substance: SECUKINUMAB
     Indication: Sneezing

REACTIONS (3)
  - Headache [Unknown]
  - Sneezing [Unknown]
  - Product use in unapproved indication [Unknown]
